FAERS Safety Report 22618889 (Version 1)
Quarter: 2023Q2

REPORT INFORMATION
  Report Type: Spontaneous
  Country: AR (occurrence: AR)
  Receive Date: 20230620
  Receipt Date: 20230620
  Transmission Date: 20230722
  Serious: No
  Sender: FDA-Public Use
  Company Number: AR-PFIZER INC-PV202300104888

PATIENT
  Age: 12 Year
  Sex: Male

DRUGS (1)
  1. GENOTROPIN [Suspect]
     Active Substance: SOMATROPIN
     Indication: Short stature
     Dosage: 1.5 TO 2 MG, 6 TIMES A WEEK
     Dates: start: 20170323

REACTIONS (4)
  - Poor quality device used [Unknown]
  - Device mechanical issue [Unknown]
  - Product residue present [Unknown]
  - Injection site pain [Unknown]
